FAERS Safety Report 8559705-3 (Version None)
Quarter: 2012Q2

REPORT INFORMATION
  Report Type: 
  Country: None (occurrence: None)
  Receive Date: 20120418
  Receipt Date: 20100504
  Transmission Date: 20120825
  Serious: Yes (Other)
  Sender: FDA-Public Use
  Company Number: PHHY2010US29140

PATIENT
  Sex: Male

DRUGS (2)
  1. DIOVAN [Suspect]
     Dosage: 320 MG, ORAL
     Route: 048
     Dates: start: 20090901
  2. VALTURNA [Suspect]
     Indication: HYPERTENSION
     Dosage: 150/100, ORAL, 300/120, ORAL
     Route: 048
     Dates: start: 20100412, end: 20100426

REACTIONS (4)
  - BLOOD PRESSURE INCREASED [None]
  - FLUSHING [None]
  - BLOOD PRESSURE FLUCTUATION [None]
  - HEADACHE [None]
